FAERS Safety Report 9391512 (Version 1)
Quarter: 2013Q3

REPORT INFORMATION
  Report Type: Spontaneous
  Country: FR (occurrence: FR)
  Receive Date: 20130709
  Receipt Date: 20130709
  Transmission Date: 20140515
  Serious: Yes (Hospitalization)
  Sender: FDA-Public Use
  Company Number: PHHY2013FR070675

PATIENT
  Age: 50 Year
  Sex: Male

DRUGS (6)
  1. VOLTARENE LP [Suspect]
     Indication: SCIATICA
     Dosage: 1 DF, BID
     Route: 048
     Dates: start: 20130115, end: 20130208
  2. SOLUMEDROL [Suspect]
     Indication: SCIATICA
     Dosage: 2 INJECTIONS OF 120 MG FOR 2 DAYS
     Route: 030
     Dates: start: 20121227
  3. SOLUMEDROL [Suspect]
     Dosage: 2 INJECTIONS OF 80 MG FOR 2 DAYS
     Route: 030
  4. SOLUMEDROL [Suspect]
     Dosage: 2 INJECTIONS OF 40 MG FOR 2 DAYS
     Route: 030
     Dates: end: 20130101
  5. BI-PROFENID [Suspect]
     Indication: SCIATICA
     Dosage: 1 DF, BID
     Route: 048
     Dates: start: 20130103, end: 20130109
  6. KARDEGIC [Concomitant]

REACTIONS (4)
  - Dermo-hypodermitis [Recovered/Resolved]
  - Necrotising fasciitis [Recovered/Resolved]
  - Skin plaque [Unknown]
  - Bacterial infection [Unknown]
